FAERS Safety Report 4458310-8 (Version None)
Quarter: 2004Q3

REPORT INFORMATION
  Report Type: 
  Country: None (occurrence: None)
  Receive Date: 20040924
  Receipt Date: 20040915
  Transmission Date: 20050211
  Serious: Yes (Hospitalization, Other)
  Sender: FDA-Public Use
  Company Number: PHBS2004NL12404

PATIENT
  Age: 76 Year
  Sex: Male

DRUGS (4)
  1. HYDROCHLOROTHIAZIDE [Suspect]
     Indication: HYPERTENSION
  2. ENALAPRIL MALEATE [Concomitant]
  3. SOTALOL HCL [Concomitant]
  4. FUROSEMIDE [Concomitant]

REACTIONS (12)
  - BLOOD CREATININE INCREASED [None]
  - BLOOD POTASSIUM DECREASED [None]
  - BLOOD PRESSURE INCREASED [None]
  - BLOOD UREA INCREASED [None]
  - CARDIAC FAILURE [None]
  - CIRCULATORY COLLAPSE [None]
  - CONFUSIONAL STATE [None]
  - DYSPNOEA [None]
  - HEART RATE IRREGULAR [None]
  - HYPONATRAEMIA [None]
  - OEDEMA [None]
  - PRODUCTIVE COUGH [None]
